FAERS Safety Report 13019847 (Version 1)
Quarter: 2016Q4

REPORT INFORMATION
  Report Type: Spontaneous
  Country: US (occurrence: US)
  Receive Date: 20161212
  Receipt Date: 20161212
  Transmission Date: 20170207
  Serious: Yes (Other)
  Sender: FDA-Public Use
  Company Number: US-ROCHE-1765841

PATIENT
  Age: 47 Year
  Sex: Female
  Weight: 115.2 kg

DRUGS (3)
  1. PREDNISONE. [Suspect]
     Active Substance: PREDNISONE
     Indication: PRODUCT USED FOR UNKNOWN INDICATION
     Route: 048
  2. ACTEMRA [Suspect]
     Active Substance: TOCILIZUMAB
     Indication: RHEUMATOID ARTHRITIS
     Route: 042
     Dates: start: 20160505
  3. ENBREL [Concomitant]
     Active Substance: ETANERCEPT
     Route: 058

REACTIONS (2)
  - Hepatic enzyme increased [Unknown]
  - Weight increased [Unknown]

NARRATIVE: CASE EVENT DATE: 20160518
